FAERS Safety Report 10982933 (Version 1)
Quarter: 2015Q1

REPORT INFORMATION
  Report Type: Spontaneous
  Country: US (occurrence: None)
  Receive Date: 20150302
  Receipt Date: 20150302
  Transmission Date: 20150721
  Serious: Yes (Other)
  Sender: FDA-Public Use
  Company Number: M2014-025

PATIENT
  Age: 68 Year
  Sex: Female

DRUGS (6)
  1. ASPERGILLIUS NIGER [Suspect]
     Active Substance: ASPERGILLUS NIGER VAR. NIGER
     Indication: IMMUNE TOLERANCE INDUCTION
     Dosage: 0.50CC/INJECTION
     Dates: start: 20140804
  2. ASPERGILLUS FUMIGATUS. [Suspect]
     Active Substance: ASPERGILLUS FUMIGATUS
  3. RHIZOPUS NIGRICANS [Suspect]
     Active Substance: RHIZOPUS STOLONIFER
  4. ALLERGENIC EXTRACT- CANDIDA. [Suspect]
     Active Substance: ALLERGENIC EXTRACT- CANDIDA
  5. FUSARIUM VASINFECTUM ? [Suspect]
     Active Substance: FUSARIUM OXYSPORUM VASINFECTUM
  6. PULLULARIA PULLULANS [Suspect]
     Active Substance: AUREOBASIDIUM PULLULANS VAR. PULLUTANS

REACTIONS (1)
  - Swelling [None]

NARRATIVE: CASE EVENT DATE: 20140804
